FAERS Safety Report 7107245 (Version 13)
Quarter: 2012Q4

REPORT INFORMATION
  Report Type: 
  Country: US (occurrence: US)
  Receive Date: 20090908
  Receipt Date: 20120914
  Transmission Date: 20130627
  Serious: Yes (Other)
  Sender: FDA-Public Use
  Company Number: PHEH2009US10063

PATIENT
  Sex: Male
  Weight: 116.55 kg

DRUGS (7)
  1. ZOMETA [Suspect]
     Indication: NEOPLASM MALIGNANT
  2. PERCOCET [Concomitant]
  3. ENALAPRIL [Concomitant]
     Dosage: 5 mg, UNK
  4. METOPROLOL [Concomitant]
     Dosage: 50 mg, BID
  5. CASODEX [Concomitant]
  6. LUPRON [Concomitant]
  7. FLUTAMIDE [Concomitant]

REACTIONS (52)
  - Cerebrovascular accident [Unknown]
  - Transient ischaemic attack [Unknown]
  - Dysarthria [Unknown]
  - Cardiac failure congestive [Unknown]
  - Cardiomegaly [Unknown]
  - Mental status changes [Unknown]
  - Pneumonia [Unknown]
  - Hepatic steatosis [Unknown]
  - Haematuria [Unknown]
  - Metastases to bone [Unknown]
  - Osteonecrosis of jaw [Unknown]
  - Pain [Unknown]
  - Deformity [Unknown]
  - Emotional distress [Unknown]
  - Anxiety [Unknown]
  - Life expectancy shortened [Unknown]
  - Anhedonia [Unknown]
  - Malignant neoplasm progression [Unknown]
  - Osteomyelitis [Unknown]
  - Pathological fracture [Unknown]
  - Mastication disorder [Unknown]
  - Adenocarcinoma [Unknown]
  - Aortic valve incompetence [Unknown]
  - Tricuspid valve incompetence [Unknown]
  - Depression [Unknown]
  - Erectile dysfunction [Unknown]
  - Spondylolysis [Unknown]
  - Colitis [Unknown]
  - Infection [Unknown]
  - Sleep apnoea syndrome [Unknown]
  - Osteopenia [Unknown]
  - Diverticulum [Unknown]
  - Paraesthesia [Unknown]
  - Anaemia [Unknown]
  - Diarrhoea [Unknown]
  - Abdominal pain [Unknown]
  - Dyspnoea [Unknown]
  - Fungal infection [Unknown]
  - Bacterial infection [Unknown]
  - Face oedema [Unknown]
  - Purulence [Unknown]
  - Weight decreased [Unknown]
  - Cough [Unknown]
  - Multiple sclerosis [Unknown]
  - Spinal osteoarthritis [Unknown]
  - Intervertebral disc degeneration [Unknown]
  - Lumbar spinal stenosis [Unknown]
  - Intervertebral disc protrusion [Unknown]
  - Arthropathy [Unknown]
  - Lymphadenopathy [Unknown]
  - Primary sequestrum [Unknown]
  - Hypermetabolism [Unknown]
